FAERS Safety Report 5749874-2 (Version None)
Quarter: 2008Q2

REPORT INFORMATION
  Report Type: 
  Country: None (occurrence: None)
  Receive Date: 20080527
  Receipt Date: 20080516
  Transmission Date: 20081010
  Serious: Yes (Death)
  Sender: FDA-Public Use
  Company Number: GB-ROCHE-564999

PATIENT
  Sex: Female
  Weight: 51.2 kg

DRUGS (5)
  1. XELODA [Suspect]
     Indication: COLON CANCER
     Dosage: 1500 MG IN THE MORNING AND 2000 MG AT NIGHT
     Route: 048
     Dates: start: 20080305
  2. XELODA [Suspect]
     Dosage: 25% DOSE REDUCTION
     Route: 048
  3. BEVACIZUMAB [Suspect]
     Indication: COLON CANCER
     Dosage: FORM:INFUSION
     Route: 042
     Dates: start: 20080305
  4. LOPERAMIDE HCL [Concomitant]
     Route: 048
     Dates: start: 20080305
  5. METOCLOPRAMIDE [Concomitant]
     Indication: ANTIEMETIC SUPPORTIVE CARE
     Route: 048
     Dates: start: 20080305

REACTIONS (2)
  - DIARRHOEA [None]
  - HYPOVOLAEMIA [None]
